FAERS Safety Report 5733595-6 (Version None)
Quarter: 2008Q2

REPORT INFORMATION
  Report Type: 
  Country: None (occurrence: None)
  Receive Date: 20080509
  Receipt Date: 20080326
  Transmission Date: 20081010
  Serious: No
  Sender: FDA-Public Use
  Company Number: A0717601A

PATIENT
  Sex: Female

DRUGS (3)
  1. ALTABAX [Suspect]
     Indication: SCRATCH
     Route: 061
  2. UNSPECIFIED MEDICATION [Suspect]
     Indication: SCRATCH
     Route: 061
  3. UNKNOWN [Concomitant]

REACTIONS (2)
  - NONSPECIFIC REACTION [None]
  - RASH [None]
